FAERS Safety Report 14509780 (Version 5)
Quarter: 2019Q1

REPORT INFORMATION
  Report Type: Spontaneous
  Country: US (occurrence: US)
  Receive Date: 20180209
  Receipt Date: 20190320
  Transmission Date: 20190417
  Serious: No
  Sender: FDA-Public Use
  Company Number: US-PFIZER INC-2018057772

PATIENT
  Age: 56 Year
  Sex: Female
  Weight: 52 kg

DRUGS (2)
  1. IBRANCE [Suspect]
     Active Substance: PALBOCICLIB
     Indication: BREAST CANCER FEMALE
     Dosage: 125 MG, CYCLIC (DAILY FOR 21 DAYS, OFF FOR 7 DAYS)
     Route: 048
     Dates: start: 2016
  2. LETROZOLE. [Concomitant]
     Active Substance: LETROZOLE
     Indication: BREAST CANCER FEMALE
     Dosage: 2.5 MG, DAILY
     Dates: start: 2016

REACTIONS (5)
  - Malaise [Unknown]
  - Intentional dose omission [Unknown]
  - Expired product administered [Unknown]
  - Condition aggravated [Unknown]
  - Eye disorder [Unknown]

NARRATIVE: CASE EVENT DATE: 2016
